FAERS Safety Report 4677883-3 (Version None)
Quarter: 2005Q2

REPORT INFORMATION
  Report Type: 
  Country: None (occurrence: None)
  Receive Date: 20050531
  Receipt Date: 20050304
  Transmission Date: 20051028
  Serious: Yes (Other)
  Sender: FDA-Public Use
  Company Number: FR-GLAXOSMITHKLINE-B0374884A

PATIENT
  Age: 65 Year
  Sex: Female

DRUGS (3)
  1. LAMOTRIGINE [Suspect]
     Route: 048
     Dates: start: 20040701
  2. SYNEDIL [Concomitant]
     Dosage: 2TAB PER DAY
     Route: 048
     Dates: start: 20041001, end: 20041101
  3. MEPRONIZINE [Concomitant]
     Dosage: .5TAB PER DAY
     Route: 048
     Dates: start: 20000201, end: 20041101

REACTIONS (4)
  - BALANCE DISORDER [None]
  - COGNITIVE DISORDER [None]
  - HALLUCINATION, VISUAL [None]
  - PSEUDODEMENTIA [None]
